FAERS Safety Report 4432551-8 (Version None)
Quarter: 2004Q3

REPORT INFORMATION
  Report Type: 
  Country: None (occurrence: None)
  Receive Date: 20040817
  Receipt Date: 20040805
  Transmission Date: 20050211
  Serious: Yes (Other)
  Sender: FDA-Public Use
  Company Number: 200410253BBE

PATIENT
  Sex: Male

DRUGS (5)
  1. KONYNE [Suspect]
     Indication: FACTOR IX DEFICIENCY
     Dates: start: 19780101, end: 19800101
  2. WHOLE BLOOD (BLOOD, WHOLE) [Suspect]
     Dates: start: 19990312
  3. PLASMA [Suspect]
     Dates: start: 19600101, end: 19700101
  4. MONONINE (FACTOR IX) [Suspect]
     Indication: FACTOR IX DEFICIENCY
     Dates: start: 19780101, end: 19900101
  5. FACTOR IX COMPLEX [Suspect]
     Indication: FACTOR IX DEFICIENCY
     Dates: start: 19780101, end: 19900101

REACTIONS (1)
  - HEPATITIS C VIRUS [None]
